FAERS Safety Report 6910492-1 (Version None)
Quarter: 2010Q3

REPORT INFORMATION
  Report Type: 
  Country: None (occurrence: None)
  Receive Date: 20100806
  Receipt Date: 20100729
  Transmission Date: 20110219
  Serious: Yes (Hospitalization)
  Sender: FDA-Public Use
  Company Number: FR-ASTRAZENECA-2010SE35692

PATIENT
  Age: 31 Year
  Sex: Male

DRUGS (5)
  1. ZOMIG [Suspect]
     Indication: MIGRAINE
     Route: 048
     Dates: start: 20040101
  2. PENTASA [Suspect]
     Indication: COLITIS ULCERATIVE
     Route: 048
  3. PENTASA [Suspect]
     Route: 054
  4. VOLTAREN [Concomitant]
  5. DOLIPRANE [Concomitant]

REACTIONS (1)
  - EOSINOPHILIC PNEUMONIA [None]
